FAERS Safety Report 14501693 (Version 1)
Quarter: 2018Q1

REPORT INFORMATION
  Report Type: Spontaneous
  Country: US (occurrence: US)
  Receive Date: 20180206
  Receipt Date: 20180206
  Transmission Date: 20180509
  Serious: Yes (Death, Life-Threatening)
  Sender: FDA-Public Use
  Company Number: None

PATIENT
  Sex: Female
  Weight: 73.35 kg

DRUGS (11)
  1. SLOW MAG [Concomitant]
     Active Substance: MAGNESIUM CHLORIDE
  2. ATORVASTATIN [Concomitant]
     Active Substance: ATORVASTATIN
  3. STENT [Concomitant]
  4. GLYBURIDE. [Concomitant]
     Active Substance: GLYBURIDE
  5. HYDRALAZINE [Concomitant]
     Active Substance: HYDRALAZINE HYDROCHLORIDE
  6. BAYER LOW DOSE ASPIRIN [Concomitant]
  7. CLOPIDOGREL 75MG TAB INT INTERNATIONAL LABORATORIES, LLC [Suspect]
     Active Substance: CLOPIDOGREL BISULFATE
     Indication: RENAL ARTERY STENT PLACEMENT
     Dosage: ?          QUANTITY:30 TABLET(S);?
     Route: 048
     Dates: start: 20160409, end: 20180102
  8. TYLENOL [Concomitant]
     Active Substance: ACETAMINOPHEN
  9. SPIRONOLACTONE. [Concomitant]
     Active Substance: SPIRONOLACTONE
  10. ISOSORB MONO ER [Concomitant]
  11. LABETALOL HCL [Concomitant]
     Active Substance: LABETALOL HYDROCHLORIDE

REACTIONS (7)
  - Cerebrovascular accident [None]
  - Thrombosis [None]
  - Pulmonary oedema [None]
  - Product use issue [None]
  - Blindness [None]
  - Pulmonary embolism [None]
  - Cardiac arrest [None]

NARRATIVE: CASE EVENT DATE: 20180102
